FAERS Safety Report 7562655-2 (Version None)
Quarter: 2011Q2

REPORT INFORMATION
  Report Type: 
  Country: None (occurrence: None)
  Receive Date: 20110621
  Receipt Date: 20110621
  Transmission Date: 20111010
  Serious: Yes (Death)
  Sender: FDA-Public Use
  Company Number: None

PATIENT
  Sex: Male
  Weight: 81.6475 kg

DRUGS (2)
  1. ADALIMUMAB [Suspect]
     Indication: PSORIASIS
     Dosage: 40 MG EVERY OTHER WEEK SQ
     Route: 058
  2. USTEKINUMAB [Suspect]
     Indication: PSORIASIS
     Dosage: 90 MCG X1 SQ
     Route: 058

REACTIONS (6)
  - ERYTHEMA [None]
  - PAIN [None]
  - FEELING HOT [None]
  - CONDITION AGGRAVATED [None]
  - PYREXIA [None]
  - RASH PUSTULAR [None]
